FAERS Safety Report 16900449 (Version 1)
Quarter: 2019Q4

REPORT INFORMATION
  Report Type: Spontaneous
  Country: US (occurrence: US)
  Receive Date: 20190816
  Receipt Date: 20190816
  Transmission Date: 20200122
  Serious: Yes (Hospitalization)
  Sender: FDA-Public Use
  Company Number: None

PATIENT
  Age: 76 Year
  Sex: Male
  Weight: 76.7 kg

DRUGS (4)
  1. CISPLATIN. [Suspect]
     Active Substance: CISPLATIN
     Dates: end: 20190724
  2. METOPROLOL. [Concomitant]
     Active Substance: METOPROLOL
  3. TAMSULOSIN [Concomitant]
     Active Substance: TAMSULOSIN
  4. ZYPREXA [Concomitant]
     Active Substance: OLANZAPINE

REACTIONS (5)
  - Palpitations [None]
  - Pancytopenia [None]
  - Orthostatic hypotension [None]
  - Dizziness [None]
  - Hyperhidrosis [None]

NARRATIVE: CASE EVENT DATE: 20190729
